FAERS Safety Report 9653701 (Version 1)
Quarter: 2013Q4

REPORT INFORMATION
  Report Type: Spontaneous
  Country: US (occurrence: US)
  Receive Date: 20131029
  Receipt Date: 20131029
  Transmission Date: 20140711
  Serious: No
  Sender: FDA-Public Use
  Company Number: US-BIOGENIDEC-2013BI080375

PATIENT
  Sex: Female

DRUGS (12)
  1. TECFIDERA [Suspect]
     Indication: MULTIPLE SCLEROSIS
     Route: 048
     Dates: start: 20130729
  2. PROVIGIL [Concomitant]
  3. FLOMAX [Concomitant]
  4. TIZANIDINE HCL [Concomitant]
  5. AMITIZA [Concomitant]
  6. BABY ASPIRIN [Concomitant]
  7. BYSTOLIC [Concomitant]
  8. CALTRATE 600 [Concomitant]
  9. CLONAZEPAM [Concomitant]
  10. COUMADIN [Concomitant]
  11. EFFEXOR XR [Concomitant]
  12. KLONOPIN [Concomitant]

REACTIONS (4)
  - Nausea [Unknown]
  - Headache [Unknown]
  - Vision blurred [Unknown]
  - Constipation [Unknown]
